FAERS Safety Report 12973457 (Version 1)
Quarter: 2016Q4

REPORT INFORMATION
  Report Type: Spontaneous
  Country: TW (occurrence: TW)
  Receive Date: 20161124
  Receipt Date: 20161124
  Transmission Date: 20170207
  Serious: Yes (Other)
  Sender: FDA-Public Use
  Company Number: TW-INGENUS PHARMACEUTICALS NJ, LLC-ING201611-000126

PATIENT
  Age: 60 Year
  Sex: Male

DRUGS (1)
  1. PROBENECID AND COLCHICINE [Suspect]
     Active Substance: COLCHICINE\PROBENECID

REACTIONS (2)
  - Myopathy [Recovered/Resolved]
  - Neuromyopathy [Recovered/Resolved]
